FAERS Safety Report 8775791 (Version 1)
Quarter: 2012Q4

REPORT INFORMATION
  Report Type: 
  Country: JP (occurrence: JP)
  Receive Date: 20120910
  Receipt Date: 20120910
  Transmission Date: 20130627
  Serious: Yes (Other)
  Sender: FDA-Public Use
  Company Number: JP-PFIZER INC-2012219429

PATIENT
  Sex: Male
  Weight: 2.58 kg

DRUGS (1)
  1. HYDROCORTISONE [Suspect]
     Indication: ADRENAL INSUFFICIENCY

REACTIONS (1)
  - Diabetes insipidus [Unknown]
